FAERS Safety Report 5059603-6 (Version None)
Quarter: 2006Q2

REPORT INFORMATION
  Report Type: 
  Country: None (occurrence: None)
  Receive Date: 20060629
  Receipt Date: 20060224
  Transmission Date: 20061013
  Serious: No
  Sender: FDA-Public Use
  Company Number: PHEH2006US02600

PATIENT
  Age: 85 Year
  Sex: Male

DRUGS (1)
  1. ENABLEX [Suspect]
     Dosage: 15 MG, QD, ORAL
     Route: 048
     Dates: start: 20050917, end: 20050917

REACTIONS (1)
  - ABDOMINAL PAIN UPPER [None]
